FAERS Safety Report 6007289-6 (Version None)
Quarter: 2008Q4

REPORT INFORMATION
  Report Type: 
  Country: None (occurrence: None)
  Receive Date: 20081217
  Receipt Date: 20080222
  Transmission Date: 20090506
  Serious: No
  Sender: FDA-Public Use
  Company Number: US-ASTRAZENECA-2008UW03900

PATIENT
  Age: 66 Year
  Sex: Male
  Weight: 97.5 kg

DRUGS (8)
  1. CRESTOR [Suspect]
     Indication: BLOOD CHOLESTEROL INCREASED
     Route: 048
     Dates: start: 20071001
  2. FUROSEMIDE [Concomitant]
  3. ENALAPRIL MALEATE [Concomitant]
  4. TOPROL-XL [Concomitant]
  5. TRICOR [Concomitant]
  6. VIRAMUNE [Concomitant]
  7. EPIVIR [Concomitant]
  8. KALETRA [Concomitant]

REACTIONS (1)
  - ALOPECIA [None]
